FAERS Safety Report 9518299 (Version 1)
Quarter: 2013Q1

REPORT INFORMATION
  Report Type: Spontaneous
  Country: US (occurrence: None)
  Receive Date: 20130305
  Receipt Date: 20130305
  Transmission Date: 20140127
  Serious: Yes (Other)
  Sender: FDA-Public Use
  Company Number: 163-21880-12072318

PATIENT
  Age: 70 Year
  Sex: Female

DRUGS (3)
  1. REVLIMID (LENALIDOMIDE) (15 MILLIGRAM, CAPSULES) [Suspect]
     Indication: PLASMA CELL MYELOMA
     Dosage: 15 MG, 14 IN 14 D, PO
     Route: 048
     Dates: start: 2012
  2. LISINOPRIL (LISINOPRIL) [Concomitant]
  3. HEART MEDICATION (CARDIAC THERAPY) [Concomitant]

REACTIONS (4)
  - Laboratory test abnormal [None]
  - Fatigue [None]
  - Dysphonia [None]
  - Drug ineffective [None]
